FAERS Safety Report 6644741-4 (Version None)
Quarter: 2010Q1

REPORT INFORMATION
  Report Type: 
  Country: None (occurrence: None)
  Receive Date: 20100322
  Receipt Date: 20100309
  Transmission Date: 20100710
  Serious: Yes (Hospitalization, Other)
  Sender: FDA-Public Use
  Company Number: US-ELI_LILLY_AND_COMPANY-US201001003314

PATIENT
  Sex: Male
  Weight: 71.655 kg

DRUGS (16)
  1. ALIMTA [Suspect]
     Indication: LUNG ADENOCARCINOMA
     Dosage: 1000 MG, UNK
     Dates: start: 20090501
  2. ALIMTA [Suspect]
     Dosage: UNK, MAINTENANCE DOSE
     Dates: start: 20090720, end: 20091116
  3. ALIMTA [Suspect]
     Dosage: 900 MG, UNK
     Dates: start: 20100105, end: 20100105
  4. VITAMIN B-12 [Concomitant]
     Dosage: 1000 UG, MONTHLY (1/M)
     Route: 030
  5. DECADRON [Concomitant]
     Indication: PREMEDICATION
     Dosage: 20 MG, UNK
     Route: 042
  6. COREG [Concomitant]
     Dosage: 12.5 MG, DAILY (1/D)
  7. PLAVIX [Concomitant]
     Dosage: 75 MG, DAILY (1/D)
  8. SIMVASTATIN [Concomitant]
     Dosage: 40 MG, DAILY (1/D)
  9. PROTONIX [Concomitant]
     Dosage: 40 MG, DAILY (1/D)
  10. MOTRIN [Concomitant]
  11. MEDROL [Concomitant]
     Dates: start: 20090825
  12. MEDROL [Concomitant]
     Dates: start: 20090914
  13. MEDROL [Concomitant]
     Dates: start: 20100105
  14. DARVOCET-N 100 [Concomitant]
     Dosage: UNK, AS NEEDED
  15. ALBUTEROL [Concomitant]
     Dosage: UNK, AS NEEDED
  16. CLONIDINE [Concomitant]
     Indication: BLOOD PRESSURE
     Dosage: 0.1 D/F, AS NEEDED

REACTIONS (8)
  - HYDRONEPHROSIS [None]
  - NON-SMALL CELL LUNG CANCER RECURRENT [None]
  - PANCYTOPENIA [None]
  - PETECHIAE [None]
  - PNEUMONIA [None]
  - RASH PAPULAR [None]
  - RENAL FAILURE [None]
  - URETERIC OBSTRUCTION [None]
